FAERS Safety Report 22046612 (Version 1)
Quarter: 2023Q1

REPORT INFORMATION
  Report Type: Spontaneous
  Country: DK (occurrence: DK)
  Receive Date: 20230228
  Receipt Date: 20230228
  Transmission Date: 20230417
  Serious: Yes (Life-Threatening)
  Sender: FDA-Public Use
  Company Number: None

PATIENT
  Age: 48 Year
  Sex: Female
  Weight: 157.4 kg

DRUGS (8)
  1. AZELASTINE [Concomitant]
     Active Substance: AZELASTINE
     Indication: Rhinitis allergic
     Dosage: STRENGTH: 0.5%. DOSAGE: IN BOTH EYES, 2 DROPS QD
     Dates: start: 20210616
  2. ENALAPRIL MALEATE [Concomitant]
     Active Substance: ENALAPRIL MALEATE
     Indication: Hypertension
     Dosage: STRENGTH: 10 MG
     Route: 048
     Dates: start: 20210624
  3. WEGOVY [Suspect]
     Active Substance: SEMAGLUTIDE
     Indication: Overweight
     Dosage: 0.25 MG, QW
     Route: 058
     Dates: start: 20230113
  4. CETIRIZINE HYDROCHLORIDE [Concomitant]
     Active Substance: CETIRIZINE HYDROCHLORIDE
     Indication: Seasonal allergy
     Dosage: STRENGTH: 10 MG
     Route: 048
     Dates: start: 20130702
  5. ACETAMINOPHEN [Concomitant]
     Active Substance: ACETAMINOPHEN
     Indication: Pain
     Dosage: 500 MG. DOSAGE: 1000 MG WHEN NEEDED, MAX 4 TIMES A DAY
     Route: 048
     Dates: start: 20221212
  6. BENDROFLUMETHIAZIDE\POTASSIUM CHLORIDE [Concomitant]
     Active Substance: BENDROFLUMETHIAZIDE\POTASSIUM CHLORIDE
     Indication: Hypertension
     Dosage: STRENGTH: 2.5+573 MG, QD
     Route: 048
     Dates: start: 20220825
  7. DYMISTA [Concomitant]
     Active Substance: AZELASTINE HYDROCHLORIDE\FLUTICASONE PROPIONATE
     Indication: Seasonal allergy
     Dosage: STRENGTH: 137+50 ?G/DOSE. DOSAGE: IN BOTH NOSTRILS.
     Route: 045
     Dates: start: 20140624
  8. CETIRIZINDIHYDROCHLORIDE ARCANA [Concomitant]
     Indication: Seasonal allergy
     Dosage: 10 MG, QD
     Dates: start: 20130702

REACTIONS (2)
  - Cor pulmonale acute [Recovering/Resolving]
  - Pulmonary embolism [Recovering/Resolving]

NARRATIVE: CASE EVENT DATE: 20230123
